FAERS Safety Report 24031012 (Version 2)
Quarter: 2024Q3

REPORT INFORMATION
  Report Type: Other
  Country: NO (occurrence: NO)
  Receive Date: 20240628
  Receipt Date: 20240702
  Transmission Date: 20241017
  Serious: Yes (Death)
  Sender: GE HEALTHCARE
  Company Number: None

PATIENT
  Age: 48 Year
  Sex: Female

DRUGS (1)
  1. OMNIPAQUE [Suspect]
     Active Substance: IOHEXOL
     Indication: Computerised tomogram
     Dosage: 130 ML, TOTAL
     Route: 042
     Dates: start: 20240430, end: 20240430

REACTIONS (5)
  - Pallor [Fatal]
  - Respiratory distress [Fatal]
  - Hyperhidrosis [Fatal]
  - Hypersensitivity [Fatal]
  - Vomiting [Fatal]

NARRATIVE: CASE EVENT DATE: 20240430
